FAERS Safety Report 9990083 (Version 1)
Quarter: 2014Q1

REPORT INFORMATION
  Report Type: Spontaneous
  Country: US (occurrence: None)
  Receive Date: 20140123
  Receipt Date: 20140123
  Transmission Date: 20141002
  Serious: Yes (Hospitalization)
  Sender: FDA-Public Use
  Company Number: UTC-036493

PATIENT
  Age: 45 Year
  Sex: Female
  Weight: 122.7 kg

DRUGS (5)
  1. REMODULIN (5 MILLIGRAM/MILLILITERS, INJECTION FOR INFUSION) (TREPROSTINIL SODIUM) [Suspect]
     Indication: COR PULMONALE CHRONIC
     Dosage: 86.4 UG/KG (0.06 UG/KG,1 IN 1 MIN)
     Route: 041
     Dates: start: 20101016
  2. ADCIRCA (TADALAFIL) [Concomitant]
  3. REVATIO (SILDENAFIL CITRATE) [Concomitant]
  4. WARFARIN [Concomitant]
  5. TRACLEER (BOSENTAN) [Concomitant]

REACTIONS (1)
  - Device related infection [None]
